FAERS Safety Report 5322445-8 (Version None)
Quarter: 2007Q2

REPORT INFORMATION
  Report Type: 
  Country: None (occurrence: None)
  Receive Date: 20070511
  Receipt Date: 20070508
  Transmission Date: 20071010
  Serious: Yes (Other)
  Sender: FDA-Public Use
  Company Number: US-ASTRAZENECA-2007UW11059

PATIENT
  Age: 17 Year
  Sex: Male

DRUGS (3)
  1. SEROQUEL [Suspect]
     Indication: BIPOLAR I DISORDER
     Route: 048
     Dates: start: 20070401
  2. SEROQUEL [Suspect]
     Route: 048
  3. FISH OIL [Concomitant]

REACTIONS (4)
  - BIPOLAR DISORDER [None]
  - MANIA [None]
  - PARKINSONIAN REST TREMOR [None]
  - TARDIVE DYSKINESIA [None]
